FAERS Safety Report 9342853 (Version 2)
Quarter: 2013Q3

REPORT INFORMATION
  Report Type: Spontaneous
  Country: BR (occurrence: BR)
  Receive Date: 20130611
  Receipt Date: 20130708
  Transmission Date: 20140515
  Serious: Yes (Other)
  Sender: FDA-Public Use
  Company Number: PHHY2013BR059132

PATIENT
  Age: 22 Year
  Sex: Female

DRUGS (6)
  1. RITALINA [Suspect]
     Indication: DISTURBANCE IN ATTENTION
     Dosage: 1 DF, DAILY
     Route: 048
     Dates: start: 20130607
  2. PAROXETINA [Concomitant]
     Indication: DEPRESSION
     Dosage: 3 DF, DAILY
     Route: 048
     Dates: start: 201001
  3. PROPANOLOL [Concomitant]
     Indication: TREMOR
     Dosage: 1 DF, DAILY
     Route: 048
  4. CLORPROMAZINA CEVALLOS [Concomitant]
     Dosage: 100 MG, UNK
  5. VALPROIC ACID [Concomitant]
     Indication: DEPRESSION
     Dosage: 5 DF, DAILY
     Route: 048
  6. TOPIRAMATE [Concomitant]
     Indication: DECREASED APPETITE
     Dosage: 0.5 DF, DAILY
     Route: 048

REACTIONS (7)
  - Speech disorder [Recovered/Resolved]
  - Irritability [Recovered/Resolved]
  - Impaired reasoning [Recovered/Resolved]
  - Lip pain [Recovered/Resolved]
  - Heart rate increased [Recovered/Resolved]
  - Somnolence [Recovered/Resolved]
  - Dizziness [Recovered/Resolved]
